FAERS Safety Report 15999682 (Version 1)
Quarter: 2019Q1

REPORT INFORMATION
  Report Type: Spontaneous
  Country: FR (occurrence: FR)
  Receive Date: 20190225
  Receipt Date: 20190225
  Transmission Date: 20190418
  Serious: Yes (Life-Threatening, Hospitalization)
  Sender: FDA-Public Use
  Company Number: FR-PFIZER INC-2019084226

PATIENT
  Age: 70 Year
  Sex: Female
  Weight: 84 kg

DRUGS (2)
  1. IMETH [Suspect]
     Active Substance: METHOTREXATE SODIUM
     Indication: PSORIATIC ARTHROPATHY
     Dosage: 15 MG, DAILY (1D)
     Route: 048
     Dates: start: 20180709, end: 20180714
  2. COLCHICINE. [Concomitant]
     Active Substance: COLCHICINE
     Dosage: 0.5 MG, DAILY  (1D)
     Route: 048
     Dates: end: 20180717

REACTIONS (9)
  - Odynophagia [Recovering/Resolving]
  - Shock [Recovered/Resolved]
  - Pyrexia [Recovered/Resolved]
  - Mouth ulceration [Recovering/Resolving]
  - Incorrect dose administered [Recovered/Resolved]
  - Rash erythematous [Recovering/Resolving]
  - Dysphonia [Recovering/Resolving]
  - Pancytopenia [Recovering/Resolving]
  - Acute kidney injury [Recovering/Resolving]

NARRATIVE: CASE EVENT DATE: 201807
